FAERS Safety Report 9206800 (Version 1)
Quarter: 2013Q1

REPORT INFORMATION
  Report Type: Spontaneous
  Country: US (occurrence: None)
  Receive Date: 20120718
  Receipt Date: 20120718
  Transmission Date: 20140127
  Serious: Yes (Life-Threatening, Hospitalization, Other)
  Sender: FDA-Public Use
  Company Number: 2011SP026304

PATIENT
  Age: 77 Year
  Sex: Female
  Weight: 77.9 kg

DRUGS (8)
  1. INTEGRILIN [Suspect]
     Indication: ACUTE MYOCARDIAL INFARCTION
     Dates: start: 20110527, end: 20110527
  2. ASPIRIN [Concomitant]
  3. PLAVIX [Concomitant]
  4. CADUET [Concomitant]
  5. METOPROLOL [Concomitant]
  6. HYDROCHLOROTHIAZIDE [Concomitant]
  7. METFORMIN [Concomitant]
  8. DIOVAN [Concomitant]

REACTIONS (1)
  - Thrombocytopenia [None]
